FAERS Safety Report 14323670 (Version 1)
Quarter: 2017Q4

REPORT INFORMATION
  Report Type: Spontaneous
  Country: FR (occurrence: FR)
  Receive Date: 20171226
  Receipt Date: 20171226
  Transmission Date: 20180321
  Serious: Yes (Other)
  Sender: FDA-Public Use
  Company Number: FR-009507513-1712FRA008800

PATIENT
  Age: 6 Year
  Sex: Male

DRUGS (1)
  1. CELESTENE [Suspect]
     Active Substance: BETAMETHASONE
     Dosage: 0.05% ORAL SOLUTION;  IN DROPS
     Route: 048

REACTIONS (1)
  - Suicidal ideation [Unknown]
